FAERS Safety Report 13911359 (Version 6)
Quarter: 2023Q2

REPORT INFORMATION
  Report Type: Spontaneous
  Country: FR (occurrence: FR)
  Receive Date: 20170828
  Receipt Date: 20230515
  Transmission Date: 20230722
  Serious: Yes (Life-Threatening, Other)
  Sender: FDA-Public Use
  Company Number: PHHY2017FR126087

PATIENT
  Age: 67 Year
  Sex: Male

DRUGS (8)
  1. AMOXICILLIN\CLAVULANATE POTASSIUM [Suspect]
     Active Substance: AMOXICILLIN\CLAVULANATE POTASSIUM
     Indication: Antibiotic prophylaxis
     Dosage: 2 G, QD
     Route: 042
     Dates: start: 20170804, end: 20170804
  2. CISATRACURIUM [Suspect]
     Active Substance: CISATRACURIUM
     Indication: General anaesthesia
     Dosage: 10 MG, QD (SINGLE)
     Route: 042
     Dates: start: 20170804, end: 20170804
  3. KETAMINE [Suspect]
     Active Substance: KETAMINE
     Indication: General anaesthesia
     Dosage: 30 MG, QD
     Route: 042
     Dates: start: 20170804, end: 20170804
  4. ULTIVA [Suspect]
     Active Substance: REMIFENTANIL HYDROCHLORIDE
     Indication: General anaesthesia
     Dosage: 52 UG, QD (SINGLE)
     Route: 042
     Dates: start: 20170804, end: 20170804
  5. EPHEDRINE [Suspect]
     Active Substance: EPHEDRINE
     Indication: General anaesthesia
     Dosage: 27 MG, QD
     Route: 042
     Dates: start: 20170804
  6. LIDOCAINE [Suspect]
     Active Substance: LIDOCAINE
     Indication: General anaesthesia
     Dosage: UNK
     Route: 008
     Dates: start: 20170804
  7. DEXAMETHASONE SODIUM PHOSPHATE [Suspect]
     Active Substance: DEXAMETHASONE SODIUM PHOSPHATE
     Indication: General anaesthesia
     Dosage: 8 MG, QD
     Route: 042
     Dates: start: 20170804, end: 20170804
  8. PROPOFOL [Suspect]
     Active Substance: PROPOFOL
     Indication: General anaesthesia
     Dosage: 150 MG, QD
     Route: 042
     Dates: start: 20170804, end: 20170804

REACTIONS (2)
  - Bronchospasm [Recovered/Resolved]
  - Anaphylactic shock [Recovered/Resolved]

NARRATIVE: CASE EVENT DATE: 20170804
